FAERS Safety Report 9240092 (Version 1)
Quarter: 2013Q2

REPORT INFORMATION
  Report Type: Spontaneous
  Country: ES (occurrence: None)
  Receive Date: 20130417
  Receipt Date: 20130417
  Transmission Date: 20140414
  Serious: Yes (Other)
  Sender: FDA-Public Use
  Company Number: ES-1197543

PATIENT
  Age: 5 Year
  Sex: Male

DRUGS (3)
  1. TOBRADEX [Suspect]
     Route: 047
     Dates: start: 20130322
  2. ZINNAT [Suspect]
     Indication: EAR INFECTION
     Route: 048
     Dates: start: 20130322
  3. OXYMETAZOLINE HYDROCHLORIDE [Suspect]
     Dates: start: 201303

REACTIONS (1)
  - Petechiae [None]
